FAERS Safety Report 8791815 (Version 2)
Quarter: 2013Q4

REPORT INFORMATION
  Report Type: Spontaneous
  Country: US (occurrence: US)
  Receive Date: 20120918
  Receipt Date: 20131101
  Transmission Date: 20140711
  Serious: No
  Sender: FDA-Public Use
  Company Number: US-009507513-1209USA003637

PATIENT
  Sex: Female

DRUGS (1)
  1. NASONEX [Suspect]
     Indication: HYPERSENSITIVITY
     Dosage: 50 MICROGRAM, UNK
     Route: 045
     Dates: start: 20120907, end: 20120907

REACTIONS (3)
  - Local swelling [Recovering/Resolving]
  - Local swelling [Recovering/Resolving]
  - Pruritus [Recovering/Resolving]
